FAERS Safety Report 5739339-6 (Version None)
Quarter: 2008Q2

REPORT INFORMATION
  Report Type: 
  Country: None (occurrence: None)
  Receive Date: 20080515
  Receipt Date: 20080506
  Transmission Date: 20081010
  Serious: Yes (Other)
  Sender: FDA-Public Use
  Company Number: US-PFIZER INC-2008032813

PATIENT
  Sex: Male
  Weight: 85.3 kg

DRUGS (6)
  1. CELEBREX [Suspect]
     Indication: NEUROPATHY PERIPHERAL
  2. LYRICA [Suspect]
     Indication: NEUROPATHY PERIPHERAL
     Route: 048
     Dates: start: 20080201, end: 20080312
  3. VERAPAMIL [Concomitant]
     Indication: HYPERTENSION
     Route: 048
  4. VITAMIN B-12 [Concomitant]
     Route: 048
  5. FOLIC ACID [Concomitant]
     Route: 048
  6. POTASSIUM CHLORIDE [Concomitant]
     Route: 048

REACTIONS (7)
  - BACK PAIN [None]
  - BALANCE DISORDER [None]
  - BED REST [None]
  - DIPLOPIA [None]
  - DRUG INEFFECTIVE [None]
  - DYSPHONIA [None]
  - PAIN [None]
